FAERS Safety Report 10570356 (Version 1)
Quarter: 2014Q4

REPORT INFORMATION
  Report Type: Spontaneous
  Country: FR (occurrence: None)
  Receive Date: 20141105
  Receipt Date: 20141105
  Transmission Date: 20150529
  Serious: Yes (Hospitalization)
  Sender: FDA-Public Use
  Company Number: 2014SA141346

PATIENT
  Age: 83 Year
  Sex: Female
  Weight: 47 kg

DRUGS (5)
  1. 5 FU (FLUOROURACIL) [Suspect]
     Active Substance: FLUOROURACIL
     Indication: PROPHYLAXIS
     Dosage: ; UNKNOWN ; UNKNOWN
  2. ELOXATIN [Suspect]
     Active Substance: OXALIPLATIN
     Indication: PROPHYLAXIS
     Dosage: 85 MILLIGRAM (S) / SQUARE METER ; UNKNOWN; INTRAVENOUS (NOT OTHERWISE SPECIFIED) TIME TO ONSET : TIME TO ONSET : 1 MONTH (S)
     Dates: start: 20140924, end: 20141007
  3. ZOPHREN [Concomitant]
     Active Substance: ONDANSETRON
  4. PRIMPERAN [Suspect]
     Active Substance: METOCLOPRAMIDE HYDROCHLORIDE
     Indication: PROPHYLAXIS
     Dosage: 10 MILLIGRAM (S) ; UNKNOWN; INTRAVENOUS (NOT OTHERWISE SPECIFIED)
     Dates: start: 20140923, end: 20141014
  5. LEUCOVORIN [Concomitant]
     Active Substance: LEUCOVORIN

REACTIONS (8)
  - Hypotonia [None]
  - Tremor [None]
  - Blood pressure decreased [None]
  - Nausea [None]
  - Fatigue [None]
  - Chills [None]
  - Body temperature decreased [None]
  - Pain [None]

NARRATIVE: CASE EVENT DATE: 20141007
